FAERS Safety Report 25066774 (Version 3)
Quarter: 2025Q4

REPORT INFORMATION
  Report Type: Report from Study
  Country: CA (occurrence: CA)
  Receive Date: 20250312
  Receipt Date: 20251029
  Transmission Date: 20260118
  Serious: Yes (Hospitalization, Other)
  Sender: CELLTRION
  Company Number: CA-CELLTRION INC.-2025CA007083

PATIENT

DRUGS (5)
  1. RITUXIMAB [Suspect]
     Active Substance: RITUXIMAB
     Indication: Rheumatoid arthritis
     Dosage: 1000 MILLIGRAM
     Route: 042
  2. RITUXIMAB [Suspect]
     Active Substance: RITUXIMAB
     Dosage: 1000 MILLIGRAM
     Route: 042
  3. RITUXIMAB [Suspect]
     Active Substance: RITUXIMAB
     Dosage: 1000 MILLIGRAM
     Route: 042
  4. RITUXIMAB [Suspect]
     Active Substance: RITUXIMAB
     Dosage: 1000 MILLIGRAM
     Route: 042
  5. RITUXIMAB [Suspect]
     Active Substance: RITUXIMAB
     Dosage: 1000 MILLIGRAM
     Route: 042

REACTIONS (12)
  - Dehydration [Unknown]
  - Drug ineffective [Unknown]
  - Fatigue [Unknown]
  - Haemoglobin decreased [Unknown]
  - Hypotension [Unknown]
  - Joint swelling [Unknown]
  - Muscular weakness [Unknown]
  - Nasal congestion [Unknown]
  - Osteoarthritis [Unknown]
  - Product dose omission issue [Unknown]
  - Rheumatoid arthritis [Unknown]
  - SARS-CoV-2 test positive [Unknown]
